FAERS Safety Report 24774948 (Version 1)
Quarter: 2024Q4

REPORT INFORMATION
  Report Type: Spontaneous
  Country: US (occurrence: US)
  Receive Date: 20241226
  Receipt Date: 20241226
  Transmission Date: 20250115
  Serious: No
  Sender: ELI LILLY AND COMPANY
  Company Number: US-ELI_LILLY_AND_COMPANY-US202412016740

PATIENT
  Sex: Female

DRUGS (1)
  1. ZEPBOUND [Suspect]
     Active Substance: TIRZEPATIDE
     Indication: Product used for unknown indication
     Dosage: UNK UNK, UNKNOWN
     Route: 065
     Dates: start: 202411

REACTIONS (5)
  - Feeling abnormal [Unknown]
  - Product dose omission issue [Unknown]
  - Blood pressure increased [Unknown]
  - Gastroenteritis viral [Unknown]
  - Dyspepsia [Unknown]

NARRATIVE: CASE EVENT DATE: 20241201
